FAERS Safety Report 15200304 (Version 2)
Quarter: 2019Q3

REPORT INFORMATION
  Report Type: Spontaneous
  Country: IN (occurrence: IN)
  Receive Date: 20180726
  Receipt Date: 20190726
  Transmission Date: 20191004
  Serious: Yes (Life-Threatening, Hospitalization, Other)
  Sender: FDA-Public Use
  Company Number: IN-LUPIN PHARMACEUTICALS INC.-2017-06937

PATIENT
  Age: 16 Year
  Sex: Male

DRUGS (4)
  1. CLOBAZAM. [Concomitant]
     Active Substance: CLOBAZAM
     Indication: JUVENILE MYOCLONIC EPILEPSY
     Dosage: 10 MG, QD (1 YEARS)
     Route: 065
  2. CLOBAZAM. [Concomitant]
     Active Substance: CLOBAZAM
     Dosage: DOSE INCREASED
     Route: 065
  3. VALPROATE [Concomitant]
     Active Substance: VALPROIC ACID
     Indication: JUVENILE MYOCLONIC EPILEPSY
     Dosage: 200 MG (MORNING) 400 MG (EVENING)
     Route: 065
  4. LAMOTRIGINE. [Suspect]
     Active Substance: LAMOTRIGINE
     Indication: JUVENILE MYOCLONIC EPILEPSY
     Dosage: 250 MG, TID (1 YEARS)
     Route: 065

REACTIONS (1)
  - Stevens-Johnson syndrome [Recovered/Resolved]
